FAERS Safety Report 14777844 (Version 1)
Quarter: 2018Q2

REPORT INFORMATION
  Report Type: Spontaneous
  Country: FR (occurrence: FR)
  Receive Date: 20180419
  Receipt Date: 20180419
  Transmission Date: 20180711
  Serious: Yes (Other)
  Sender: FDA-Public Use
  Company Number: FR-MERCK KGAA-2046038

PATIENT
  Age: 40 Year
  Sex: Female

DRUGS (1)
  1. NOVOTHYROX [Suspect]
     Active Substance: LEVOTHYROXINE SODIUM
     Indication: POST PROCEDURAL HYPOTHYROIDISM

REACTIONS (21)
  - Dizziness [None]
  - Abdominal pain [None]
  - Alopecia [None]
  - Insomnia [None]
  - Gastrointestinal disorder [None]
  - Social anxiety disorder [None]
  - Headache [None]
  - Muscle spasms [None]
  - Hypothyroidism [None]
  - Cough [None]
  - Arthralgia [None]
  - Spinal compression fracture [None]
  - Irritability [None]
  - Anger [None]
  - Depression [None]
  - Asthenia [None]
  - Muscular weakness [None]
  - Pain [None]
  - Fatigue [None]
  - Anxiety [None]
  - Blood thyroid stimulating hormone increased [None]

NARRATIVE: CASE EVENT DATE: 201706
